FAERS Safety Report 6248101-X (Version None)
Quarter: 2009Q2

REPORT INFORMATION
  Report Type: 
  Country: None (occurrence: None)
  Receive Date: 20090624
  Receipt Date: 20090624
  Transmission Date: 20091009
  Serious: Yes (Other)
  Sender: FDA-Public Use
  Company Number: None

PATIENT
  Sex: Female
  Weight: 77.1115 kg

DRUGS (2)
  1. SEROQUEL [Suspect]
     Indication: ANXIETY
     Dosage: BETWEEN 800MG + 100MG 1 @ HS MOUTH
     Route: 048
     Dates: start: 20000101
  2. SEROQUEL [Suspect]
     Indication: MAJOR DEPRESSION
     Dosage: BETWEEN 800MG + 100MG 1 @ HS MOUTH
     Route: 048
     Dates: start: 20000101

REACTIONS (4)
  - BLOOD TRIGLYCERIDES INCREASED [None]
  - CATARACT [None]
  - DIABETES MELLITUS [None]
  - WEIGHT INCREASED [None]
